FAERS Safety Report 4947074-7 (Version None)
Quarter: 2006Q1

REPORT INFORMATION
  Report Type: 
  Country: None (occurrence: None)
  Receive Date: 20060310
  Receipt Date: 20060228
  Transmission Date: 20060701
  Serious: Yes (Hospitalization)
  Sender: FDA-Public Use
  Company Number: 2006-US-00856

PATIENT
  Age: 44 Year
  Sex: Male

DRUGS (1)
  1. CLOZAPINE [Suspect]
     Indication: SCHIZOPHRENIA
     Dosage: 550 MG, QD, ORAL
     Route: 048
     Dates: start: 20000501

REACTIONS (2)
  - ALCOHOL WITHDRAWAL SYNDROME [None]
  - SUICIDE ATTEMPT [None]
